FAERS Safety Report 14196334 (Version 3)
Quarter: 2017Q4

REPORT INFORMATION
  Report Type: Report from Study
  Country: US (occurrence: US)
  Receive Date: 20171116
  Receipt Date: 20171222
  Transmission Date: 20180321
  Serious: Yes (Death, Hospitalization)
  Sender: FDA-Public Use
  Company Number: US-JNJFOC-20170917331

PATIENT
  Age: 75 Year
  Sex: Male

DRUGS (4)
  1. MORPHINE [Concomitant]
     Active Substance: MORPHINE
  2. TRIAMTERENE. [Concomitant]
     Active Substance: TRIAMTERENE
  3. ZOFRAN [Concomitant]
     Active Substance: ONDANSETRON HYDROCHLORIDE
  4. IMBRUVICA [Suspect]
     Active Substance: IBRUTINIB
     Indication: CHRONIC LYMPHOCYTIC LEUKAEMIA
     Route: 048
     Dates: start: 20170813, end: 20171110

REACTIONS (15)
  - Gait disturbance [Not Recovered/Not Resolved]
  - Dyskinesia [Unknown]
  - Urinary tract infection [Unknown]
  - Night sweats [Not Recovered/Not Resolved]
  - Skin discolouration [Unknown]
  - Increased tendency to bruise [Not Recovered/Not Resolved]
  - Off label use [Unknown]
  - Pain in extremity [Unknown]
  - Hyperhidrosis [Not Recovered/Not Resolved]
  - Incorrect dose administered [Unknown]
  - Death [Fatal]
  - Myoclonus [Unknown]
  - Fatigue [Not Recovered/Not Resolved]
  - Asthenia [Not Recovered/Not Resolved]
  - Rash macular [Unknown]

NARRATIVE: CASE EVENT DATE: 20170813
